FAERS Safety Report 9688430 (Version 1)
Quarter: 2013Q4

REPORT INFORMATION
  Report Type: Spontaneous
  Country: ES (occurrence: ES)
  Receive Date: 20131114
  Receipt Date: 20131114
  Transmission Date: 20140711
  Serious: Yes (Other)
  Sender: FDA-Public Use
  Company Number: ES-TAKEDA-2013TUS002185

PATIENT
  Age: 62 Year
  Sex: Male

DRUGS (1)
  1. ADENURIC [Suspect]
     Indication: HYPERURICAEMIA
     Route: 065

REACTIONS (4)
  - Skin fragility [Unknown]
  - Blister [Unknown]
  - Skin erosion [Unknown]
  - Porphyrins urine increased [Unknown]
